FAERS Safety Report 8596087-5 (Version None)
Quarter: 2012Q3

REPORT INFORMATION
  Report Type: 
  Country: None (occurrence: None)
  Receive Date: 20120801
  Receipt Date: 20120717
  Transmission Date: 20120928
  Serious: Yes (Hospitalization)
  Sender: FDA-Public Use
  Company Number: DSJ-2012-00740

PATIENT
  Sex: Female

DRUGS (7)
  1. METFORMIN HCL [Concomitant]
  2. BENICAR HCT [Suspect]
     Indication: HYPERTENSION
     Dosage: SEE IMAGE
     Route: 048
     Dates: start: 20111201, end: 20111201
  3. BENICAR HCT [Suspect]
     Indication: HYPERTENSION
     Dosage: SEE IMAGE
     Route: 048
     Dates: end: 20111201
  4. BENICAR HCT [Suspect]
     Indication: HYPERTENSION
     Dosage: SEE IMAGE
     Route: 048
     Dates: start: 20120101
  5. BENICAR HCT [Suspect]
     Indication: HYPERTENSION
     Dosage: SEE IMAGE
     Route: 048
     Dates: start: 20111201
  6. BENICAR HCT [Suspect]
     Indication: HYPERTENSION
     Dosage: SEE IMAGE
     Route: 048
     Dates: start: 20111201, end: 20111201
  7. SIMVASTATIN (SIMVASTATIN) 9SIMVASTATIN) [Concomitant]

REACTIONS (6)
  - BLOOD PRESSURE INCREASED [None]
  - ANAEMIA [None]
  - DRUG ADMINISTRATION ERROR [None]
  - HYPOKALAEMIA [None]
  - SPINAL OPERATION [None]
  - DRUG INEFFECTIVE [None]
